FAERS Safety Report 5978221-6 (Version None)
Quarter: 2008Q4

REPORT INFORMATION
  Report Type: 
  Country: None (occurrence: None)
  Receive Date: 20081204
  Receipt Date: 20081202
  Transmission Date: 20090506
  Serious: Yes (Hospitalization)
  Sender: FDA-Public Use
  Company Number: US-BIOGENIDEC-2008BI031924

PATIENT
  Age: 54 Year
  Sex: Male
  Weight: 112 kg

DRUGS (1)
  1. TYSABRI [Suspect]
     Indication: MULTIPLE SCLEROSIS
     Route: 042
     Dates: start: 20080709

REACTIONS (3)
  - HEART RATE IRREGULAR [None]
  - MULTIPLE SCLEROSIS RELAPSE [None]
  - UROSEPSIS [None]
